FAERS Safety Report 7718231-1 (Version None)
Quarter: 2011Q3

REPORT INFORMATION
  Report Type: 
  Country: None (occurrence: None)
  Receive Date: 20110830
  Receipt Date: 20110819
  Transmission Date: 20111222
  Serious: Yes (Hospitalization, Other)
  Sender: FDA-Public Use
  Company Number: PHHY2011AU70636

PATIENT
  Sex: Male
  Weight: 112 kg

DRUGS (5)
  1. METFORMIN HCL [Concomitant]
     Indication: DIABETES MELLITUS
     Dosage: 1000 MG, BID
     Route: 048
  2. GLICLAZIDE [Concomitant]
     Indication: DIABETES MELLITUS
     Dosage: 60 MG, MANE
     Route: 048
     Dates: start: 20090101
  3. CLOZAPINE [Suspect]
     Dosage: 300 MG
     Route: 048
     Dates: start: 20110601
  4. CLOZAPINE [Suspect]
     Indication: SCHIZOPHRENIA
     Dosage: 300 MG
     Dates: start: 20090623
  5. QUETIAPINE [Concomitant]
     Indication: SCHIZOPHRENIA
     Dosage: 200 MG
     Route: 048
     Dates: start: 20110601

REACTIONS (7)
  - NEUTROPHIL COUNT INCREASED [None]
  - RED BLOOD CELL SEDIMENTATION RATE INCREASED [None]
  - WHITE BLOOD CELL COUNT INCREASED [None]
  - PYREXIA [None]
  - SEPSIS [None]
  - C-REACTIVE PROTEIN INCREASED [None]
  - SUBCUTANEOUS ABSCESS [None]
